FAERS Safety Report 7271241-3 (Version None)
Quarter: 2011Q1

REPORT INFORMATION
  Report Type: 
  Country: None (occurrence: None)
  Receive Date: 20110202
  Receipt Date: 20110120
  Transmission Date: 20110831
  Serious: Yes (Other)
  Sender: FDA-Public Use
  Company Number: US-ELI_LILLY_AND_COMPANY-US201008005375

PATIENT
  Sex: Female

DRUGS (4)
  1. FORTEO [Suspect]
     Dosage: 20 UG, DAILY (1/D)
  2. FORTEO [Suspect]
     Indication: OSTEOPOROSIS
     Dosage: 20 UG, DAILY (1/D)
     Dates: start: 20100816
  3. FORTEO [Suspect]
     Dosage: 20 UG, DAILY (1/D)
  4. FOSAMAX [Concomitant]
     Dosage: UNK, UNKNOWN

REACTIONS (18)
  - ARTHRALGIA [None]
  - FLUSHING [None]
  - INTRACRANIAL ANEURYSM [None]
  - HEADACHE [None]
  - INJECTION SITE HAEMATOMA [None]
  - COUGH [None]
  - INCORRECT ROUTE OF DRUG ADMINISTRATION [None]
  - EPISTAXIS [None]
  - CONVULSION [None]
  - JAW DISORDER [None]
  - NASAL CONGESTION [None]
  - INJECTION SITE HAEMORRHAGE [None]
  - INJECTION SITE ERYTHEMA [None]
  - ALOPECIA [None]
  - HEART RATE INCREASED [None]
  - PRURITUS [None]
  - GASTROINTESTINAL MOTILITY DISORDER [None]
  - INJECTION SITE PAIN [None]
